FAERS Safety Report 5524782-0 (Version None)
Quarter: 2007Q4

REPORT INFORMATION
  Report Type: 
  Country: None (occurrence: None)
  Receive Date: 20071116
  Receipt Date: 20071114
  Transmission Date: 20080405
  Serious: Yes (Other)
  Sender: FDA-Public Use
  Company Number: TCI2007A05966

PATIENT
  Age: 41 Year
  Sex: Male

DRUGS (3)
  1. LANSOPRAZOLE [Suspect]
     Indication: REFLUX OESOPHAGITIS
     Dosage: 15 MG (15 MG, 1 IN 1 D) PER ORAL; 15 MG (15 MG, 1 IN 1 D) PER ORAL
     Route: 048
     Dates: end: 20071012
  2. LANSOPRAZOLE [Suspect]
     Indication: REFLUX OESOPHAGITIS
     Dosage: 15 MG (15 MG, 1 IN 1 D) PER ORAL; 15 MG (15 MG, 1 IN 1 D) PER ORAL
     Route: 048
     Dates: start: 20050101
  3. RABEPRAZOLE SODIUM [Suspect]
     Dosage: 10 MG (10 MG, 1 D) PER ORAL
     Route: 048
     Dates: start: 20070801

REACTIONS (3)
  - BLOOD CREATINE PHOSPHOKINASE INCREASED [None]
  - LYMPHOCYTE STIMULATION TEST POSITIVE [None]
  - MUSCLE SPASMS [None]
